FAERS Safety Report 24896412 (Version 1)
Quarter: 2025Q1

REPORT INFORMATION
  Report Type: Report from Study
  Country: DE (occurrence: DE)
  Receive Date: 20250128
  Receipt Date: 20250128
  Transmission Date: 20250408
  Serious: Yes (Other)
  Sender: TEVA
  Company Number: DE-CELGENE-DEU-2016118019

PATIENT
  Age: 76 Year
  Sex: Female
  Weight: 59 kg

DRUGS (13)
  1. CARBOPLATIN [Suspect]
     Active Substance: CARBOPLATIN
     Indication: Non-small cell lung cancer
     Route: 065
     Dates: start: 20160928, end: 20161214
  2. ABRAXANE [Suspect]
     Active Substance: PACLITAXEL
     Indication: Non-small cell lung cancer
     Route: 041
     Dates: start: 20161019, end: 20161221
  3. ABRAXANE [Suspect]
     Active Substance: PACLITAXEL
     Indication: Non-small cell lung cancer
     Route: 041
     Dates: start: 20160928
  4. ISDN-RATIOPHARM [Concomitant]
     Indication: Myocardial infarction
     Dosage: DOSAGE TEXT: 40 MG
     Route: 065
  5. INSULIN HUMAN [Concomitant]
     Active Substance: INSULIN HUMAN
     Indication: Product used for unknown indication
     Route: 065
  6. delix [Concomitant]
     Indication: Hypertonia
     Dosage: DOSAGE TEXT: 5MG
     Route: 065
  7. PANTOZOL [Concomitant]
     Active Substance: PANTOPRAZOLE SODIUM
     Indication: Dyspepsia
     Dosage: DOSAGE TEXT: 80 MG
     Route: 065
  8. HCT-BETA [Concomitant]
     Indication: Hypertonia
     Dosage: DOSAGE TEXT: 12.5 MG
     Route: 065
  9. ASPIRIN [Concomitant]
     Active Substance: ASPIRIN
     Indication: Cerebrovascular accident
     Dosage: DOSAGE TEXT: 100 MG
     Route: 065
  10. DIAZEPAM [Concomitant]
     Active Substance: DIAZEPAM
     Indication: Insomnia
     Dosage: DOSAGE TEXT: 1 MG
     Route: 065
  11. MIRTAZAPINE [Concomitant]
     Active Substance: MIRTAZAPINE
     Indication: Insomnia
     Dosage: DOSAGE TEXT: 7.5 MG
     Route: 065
  12. BISOPROLOL-RATIOPHARM [Concomitant]
     Indication: Myocardial infarction
     Dosage: DOSAGE TEXT: 5 MG
     Route: 065
  13. carmen [Concomitant]
     Indication: Hypertonia
     Dosage: DOSAGE TEXT: 10 MG
     Route: 065

REACTIONS (7)
  - Decreased appetite [Not Recovered/Not Resolved]
  - Anaemia [Not Recovered/Not Resolved]
  - Polyneuropathy [Not Recovered/Not Resolved]
  - Vomiting [Not Recovered/Not Resolved]
  - Skin toxicity [Not Recovered/Not Resolved]
  - Restlessness [Not Recovered/Not Resolved]
  - Fatigue [Not Recovered/Not Resolved]

NARRATIVE: CASE EVENT DATE: 20161102
